FAERS Safety Report 5475472-4 (Version None)
Quarter: 2007Q4

REPORT INFORMATION
  Report Type: 
  Country: None (occurrence: None)
  Receive Date: 20071003
  Receipt Date: 20070925
  Transmission Date: 20080405
  Serious: Yes (Hospitalization)
  Sender: FDA-Public Use
  Company Number: NL-AVENTIS-200718838GDDC

PATIENT
  Age: 73 Year
  Sex: Male

DRUGS (3)
  1. DOCETAXEL [Suspect]
     Indication: NON-SMALL CELL LUNG CANCER
     Dosage: DOSE: UNK
     Route: 042
     Dates: start: 20070125, end: 20070419
  2. CARBOPLATIN [Suspect]
     Indication: NON-SMALL CELL LUNG CANCER
     Dosage: DOSE: UNK
     Route: 042
     Dates: start: 20070419, end: 20070419
  3. CODE UNBROKEN [Suspect]
     Indication: NON-SMALL CELL LUNG CANCER
     Dosage: DOSE: TWO
     Route: 048
     Dates: start: 20070125, end: 20070813

REACTIONS (1)
  - CEREBRAL ISCHAEMIA [None]
